FAERS Safety Report 7158804-0 (Version None)
Quarter: 2010Q4

REPORT INFORMATION
  Report Type: 
  Country: None (occurrence: None)
  Receive Date: 20101214
  Receipt Date: 20100702
  Transmission Date: 20110411
  Serious: Yes (Hospitalization)
  Sender: FDA-Public Use
  Company Number: US-ASTRAZENECA-2010SE31029

PATIENT
  Age: 84 Year
  Sex: Male

DRUGS (11)
  1. CRESTOR [Suspect]
     Indication: HYPERLIPIDAEMIA
     Route: 048
     Dates: start: 20070101, end: 20090101
  2. CRESTOR [Suspect]
     Route: 048
     Dates: start: 20090101, end: 20090101
  3. NEXIUM [Concomitant]
  4. HYZAAR [Concomitant]
     Indication: BLOOD PRESSURE
  5. GENUVIA [Concomitant]
  6. PLAVIX [Concomitant]
  7. COLACE [Concomitant]
  8. ASPIRIN [Concomitant]
  9. LANTUS [Concomitant]
  10. ZETIA [Concomitant]
  11. APIDRA [Concomitant]

REACTIONS (1)
  - RHABDOMYOLYSIS [None]
